FAERS Safety Report 12455180 (Version 1)
Quarter: 2016Q2

REPORT INFORMATION
  Report Type: Spontaneous
  Country: BR (occurrence: BR)
  Receive Date: 20160610
  Receipt Date: 20160610
  Transmission Date: 20160815
  Serious: Yes (Other)
  Sender: FDA-Public Use
  Company Number: PHHY2016BR078904

PATIENT
  Age: 67 Year
  Sex: Female
  Weight: 69 kg

DRUGS (1)
  1. CODATEN [Suspect]
     Active Substance: CODEINE PHOSPHATE\DICLOFENAC SODIUM
     Indication: POSTOPERATIVE CARE
     Dosage: 1 DF, Q8H
     Route: 065
     Dates: start: 20160519, end: 20160520

REACTIONS (2)
  - Arrhythmia [Recovering/Resolving]
  - Heart rate increased [Unknown]
